FAERS Safety Report 16187137 (Version 1)
Quarter: 2019Q2

REPORT INFORMATION
  Report Type: Spontaneous
  Country: FR (occurrence: FR)
  Receive Date: 20190411
  Receipt Date: 20190411
  Transmission Date: 20190711
  Serious: Yes (Hospitalization)
  Sender: FDA-Public Use
  Company Number: FR-009507513-1904FRA002219

PATIENT
  Age: 69 Year
  Sex: Male
  Weight: 70 kg

DRUGS (6)
  1. INNOHEP [Concomitant]
     Active Substance: TINZAPARIN SODIUM
     Indication: PULMONARY EMBOLISM
     Dosage: 12000 INTERNATIONAL UNIT, UNK
     Route: 058
     Dates: start: 201812
  2. KEPPRA [Concomitant]
     Active Substance: LEVETIRACETAM
     Indication: SEIZURE
     Dosage: 2 GRAM, QD
     Route: 048
  3. BELUSTINE [Concomitant]
     Active Substance: LOMUSTINE
     Indication: ANAPLASTIC ASTROCYTOMA
     Dosage: 160 MILLIGRAM, CYCLICAL
     Route: 048
     Dates: end: 20190125
  4. XALKORI [Suspect]
     Active Substance: CRIZOTINIB
     Indication: NON-SMALL CELL LUNG CANCER
     Dosage: 500 MILLIGRAM, QD
     Route: 048
     Dates: start: 20190111, end: 20190307
  5. BISOCE [Concomitant]
     Active Substance: BISOPROLOL
     Indication: INFARCTION
     Dosage: 10 MILLIGRAM, QD
     Route: 048
  6. SIMVASTATIN. [Suspect]
     Active Substance: SIMVASTATIN
     Indication: PROPHYLAXIS
     Dosage: 20 MILLIGRAM, QD
     Route: 048
     Dates: end: 20190308

REACTIONS (2)
  - Oedema peripheral [Recovering/Resolving]
  - Cardiac failure acute [Recovering/Resolving]

NARRATIVE: CASE EVENT DATE: 20190212
